FAERS Safety Report 10145882 (Version 2)
Quarter: 2014Q2

REPORT INFORMATION
  Report Type: Report from Study
  Country: US (occurrence: US)
  Receive Date: 20140501
  Receipt Date: 20140501
  Transmission Date: 20141212
  Serious: No
  Sender: FDA-Public Use
  Company Number: US-ABBVIE-13P-163-1078869-00

PATIENT
  Sex: Female

DRUGS (2)
  1. CREON [Suspect]
     Indication: PANCREATIC INSUFFICIENCY
     Dosage: ONE DOSAGE
  2. CREON [Suspect]
     Dosage: ONE DOSAGE SPILT IN TWO

REACTIONS (2)
  - Drug ineffective [Unknown]
  - Nausea [Unknown]
